FAERS Safety Report 5286612-4 (Version None)
Quarter: 2007Q2

REPORT INFORMATION
  Report Type: 
  Country: None (occurrence: None)
  Receive Date: 20070404
  Receipt Date: 20070402
  Transmission Date: 20071010
  Serious: Yes (Other)
  Sender: FDA-Public Use
  Company Number: US-GLAXOSMITHKLINE-A0645608A

PATIENT
  Age: 57 Year
  Sex: Female

DRUGS (8)
  1. ADVAIR DISKUS 100/50 [Suspect]
     Indication: ASTHMA
     Dosage: 1PUFF TWICE PER DAY
     Route: 055
  2. SINGULAIR [Concomitant]
  3. ALLEGRA [Concomitant]
  4. SYNTHROID [Concomitant]
  5. BENICAR [Concomitant]
  6. VYTORIN [Concomitant]
  7. ZOCOR [Concomitant]
  8. NEXIUM [Concomitant]

REACTIONS (4)
  - CATARACT [None]
  - VASCULAR INJURY [None]
  - VISION BLURRED [None]
  - VISUAL ACUITY REDUCED [None]
